FAERS Safety Report 11593927 (Version 1)
Quarter: 2015Q4

REPORT INFORMATION
  Report Type: Spontaneous
  Country: US (occurrence: US)
  Receive Date: 20151005
  Receipt Date: 20151005
  Transmission Date: 20160304
  Serious: Yes (Hospitalization)
  Sender: FDA-Public Use
  Company Number: PHEH2015US019057

PATIENT
  Age: 64 Year
  Sex: Female

DRUGS (2)
  1. AROMASIN [Suspect]
     Active Substance: EXEMESTANE
     Indication: BREAST CANCER
     Route: 065
     Dates: start: 201505
  2. AFINITOR [Suspect]
     Active Substance: EVEROLIMUS
     Indication: BREAST CANCER
     Dosage: UNK
     Route: 065
     Dates: start: 2015

REACTIONS (17)
  - Peripheral swelling [Unknown]
  - Dizziness postural [Unknown]
  - Dysgeusia [Unknown]
  - Blood glucose increased [Unknown]
  - Malignant neoplasm progression [Unknown]
  - Malaise [Unknown]
  - Decreased appetite [Unknown]
  - Bacteraemia [Unknown]
  - Dyspnoea exertional [Unknown]
  - Hypotension [Unknown]
  - Pneumonia [Unknown]
  - Blood urea decreased [Unknown]
  - Stomatitis [Unknown]
  - Haematocrit decreased [Unknown]
  - Blood creatinine increased [Unknown]
  - Blood calcium decreased [Unknown]
  - Fatigue [Unknown]

NARRATIVE: CASE EVENT DATE: 20150710
